FAERS Safety Report 22365845 (Version 1)
Quarter: 2023Q2

REPORT INFORMATION
  Report Type: Other
  Country: GB (occurrence: GB)
  Receive Date: 20230525
  Receipt Date: 20230525
  Transmission Date: 20230721
  Serious: Yes (Other)
  Sender: FDA-Public Use
  Company Number: None

PATIENT
  Age: 72 Year
  Sex: Female

DRUGS (6)
  1. MIRABEGRON [Suspect]
     Active Substance: MIRABEGRON
     Indication: Ill-defined disorder
     Dosage: 50 MG, ONCE DAILY (CHECK BLOOD PRESSURE EVERY 6 M)
     Route: 048
     Dates: start: 20220824
  2. ASPIRIN [Concomitant]
     Active Substance: ASPIRIN
     Indication: Ill-defined disorder
     Dosage: 1 DF, UNKNOWN FREQ. (DISSOLVE ONE TABLET IN WATER AND TAKE AFTER BRE)
     Route: 048
     Dates: start: 20220301
  3. CO-DYDRAMOL [Concomitant]
     Active Substance: ACETAMINOPHEN\DIHYDROCODEINE
     Indication: Ill-defined disorder
     Dosage: UNK UNK, (TAKE 1 OR 2 UP TO 4 TIMES/DAY AS AND WHEN NEEDED)
     Route: 065
     Dates: start: 20210802
  4. FESOTERODINE FUMARATE [Concomitant]
     Active Substance: FESOTERODINE FUMARATE
     Indication: Ill-defined disorder
     Route: 065
     Dates: start: 20220318, end: 20220824
  5. OMEPRAZOLE [Concomitant]
     Active Substance: OMEPRAZOLE
     Indication: Ill-defined disorder
     Dosage: 1 DF, ONCE DAILY (EACH MORNING)
     Route: 065
     Dates: start: 20220301
  6. MINERAL OIL [Concomitant]
     Active Substance: MINERAL OIL
     Indication: Ill-defined disorder
     Dosage: UNK UNK, USE AS DIRECTED
     Route: 065
     Dates: start: 20190715

REACTIONS (2)
  - Urinary incontinence [Recovering/Resolving]
  - Palpitations [Recovering/Resolving]

NARRATIVE: CASE EVENT DATE: 20220901
